FAERS Safety Report 23118470 (Version 2)
Quarter: 2023Q4

REPORT INFORMATION
  Report Type: Spontaneous
  Country: US (occurrence: US)
  Receive Date: 20231028
  Receipt Date: 20231102
  Transmission Date: 20240109
  Serious: Yes (Other)
  Sender: FDA-Public Use
  Company Number: US-AMGEN-USASP2023188807

PATIENT
  Age: 76 Year
  Sex: Female

DRUGS (1)
  1. ENBREL [Suspect]
     Active Substance: ETANERCEPT
     Indication: Product used for unknown indication
     Dosage: 50 MILLIGRAM, QWK
     Route: 065

REACTIONS (5)
  - Neovascular age-related macular degeneration [Unknown]
  - Incorrect dose administered by device [Unknown]
  - Injection site pain [Unknown]
  - Device use error [Unknown]
  - Device difficult to use [Unknown]

NARRATIVE: CASE EVENT DATE: 20231020
